FAERS Safety Report 7435306-5 (Version None)
Quarter: 2011Q2

REPORT INFORMATION
  Report Type: 
  Country: None (occurrence: None)
  Receive Date: 20110425
  Receipt Date: 20110418
  Transmission Date: 20111010
  Serious: Yes (Hospitalization)
  Sender: FDA-Public Use
  Company Number: US-JNJFOC-20110301416

PATIENT
  Sex: Female
  Weight: 47.63 kg

DRUGS (3)
  1. PLAVIX [Concomitant]
     Indication: TRANSIENT ISCHAEMIC ATTACK
     Route: 048
  2. LEVAQUIN [Suspect]
     Indication: ESCHERICHIA INFECTION
     Route: 042
  3. NAMENDA [Concomitant]
     Indication: DEMENTIA
     Route: 048

REACTIONS (5)
  - BLOOD PRESSURE INCREASED [None]
  - FLUID RETENTION [None]
  - DIARRHOEA [None]
  - BLOOD CREATINE INCREASED [None]
  - WEIGHT INCREASED [None]
